FAERS Safety Report 6804723-6 (Version None)
Quarter: 2010Q2

REPORT INFORMATION
  Report Type: 
  Country: None (occurrence: None)
  Receive Date: 20100628
  Receipt Date: 20070522
  Transmission Date: 20101027
  Serious: No
  Sender: FDA-Public Use
  Company Number: US-PFIZER INC-2007042855

PATIENT
  Sex: Female
  Weight: 101.15 kg

DRUGS (8)
  1. GEODON [Suspect]
     Indication: MOOD SWINGS
     Dates: start: 20070507, end: 20070521
  2. INSULIN [Concomitant]
  3. XANAX [Concomitant]
  4. ROZEREM [Concomitant]
     Indication: INSOMNIA
  5. NEXIUM [Concomitant]
     Indication: DEPRESSION
  6. VYTORIN [Concomitant]
     Indication: DEPRESSION
  7. BENICAR [Concomitant]
     Indication: DEPRESSION
  8. LEXAPRO [Concomitant]
     Indication: DEPRESSION

REACTIONS (1)
  - HYPOAESTHESIA [None]
